FAERS Safety Report 7370786-5 (Version None)
Quarter: 2011Q1

REPORT INFORMATION
  Report Type: 
  Country: None (occurrence: None)
  Receive Date: 20110324
  Receipt Date: 20110314
  Transmission Date: 20110831
  Serious: Yes (Hospitalization)
  Sender: FDA-Public Use
  Company Number: US-BIOGENIDEC-2010BI006679

PATIENT
  Age: 48 Year
  Sex: Female

DRUGS (8)
  1. BACLOFEN [Concomitant]
     Route: 048
  2. DEPAKOTE [Concomitant]
     Route: 048
  3. OXYBUTYNIN [Concomitant]
     Route: 048
  4. VANCOMYCIN [Concomitant]
     Route: 042
  5. GABAPENTIN [Concomitant]
  6. TYSABRI [Suspect]
     Indication: MULTIPLE SCLEROSIS
     Route: 042
     Dates: start: 20090311
  7. ONDANSETRON [Concomitant]
     Route: 048
  8. FOSAMAX [Concomitant]
     Route: 048

REACTIONS (1)
  - OSTEOMYELITIS [None]
